FAERS Safety Report 18721712 (Version 2)
Quarter: 2021Q1

REPORT INFORMATION
  Report Type: Spontaneous
  Country: PL (occurrence: PL)
  Receive Date: 20210110
  Receipt Date: 20210304
  Transmission Date: 20210419
  Serious: Yes (Other)
  Sender: FDA-Public Use
  Company Number: PL-TEVA-2020-PL-1865331

PATIENT
  Age: 72 Year
  Sex: Female

DRUGS (5)
  1. VINCRISTINE [Suspect]
     Active Substance: VINCRISTINE
     Indication: DIFFUSE LARGE B-CELL LYMPHOMA
     Dosage: RECEIVED EIGHT CYCLES OF CHEMOTHERAPY; R?COP REGIMEN
     Route: 065
     Dates: end: 201705
  2. PREDNISONE. [Suspect]
     Active Substance: PREDNISONE
     Indication: DIFFUSE LARGE B-CELL LYMPHOMA
     Dosage: RECEIVED EIGHT CYCLES OF CHEMOTHERAPY; R?COP REGIMEN
     Route: 065
     Dates: end: 201705
  3. RITUXIMAB. [Suspect]
     Active Substance: RITUXIMAB
     Indication: DIFFUSE LARGE B-CELL LYMPHOMA
     Dosage: RECEIVED EIGHT CYCLES OF CHEMOTHERAPY; R?COP REGIMEN
     Route: 065
     Dates: end: 201705
  4. DOXORUBICIN [Suspect]
     Active Substance: DOXORUBICIN
     Indication: DIFFUSE LARGE B-CELL LYMPHOMA
     Dosage: RECEIVED ONE CYCLE
     Route: 065
  5. CYCLOPHOSPHAMIDE. [Suspect]
     Active Substance: CYCLOPHOSPHAMIDE
     Indication: DIFFUSE LARGE B-CELL LYMPHOMA
     Dosage: RECEIVED EIGHT CYCLES OF CHEMOTHERAPY; R?COP REGIMEN
     Route: 065
     Dates: end: 201705

REACTIONS (1)
  - Gastric ulcer haemorrhage [Unknown]
